FAERS Safety Report 25858450 (Version 1)
Quarter: 2025Q3

REPORT INFORMATION
  Report Type: Report from Study
  Country: EU (occurrence: EU)
  Receive Date: 20250929
  Receipt Date: 20250929
  Transmission Date: 20251020
  Serious: Yes (Hospitalization, Other)
  Sender: MYLAN
  Company Number: EU-MYLANLABS-2025M1081041

PATIENT
  Age: 63 Year
  Sex: Female

DRUGS (1)
  1. CLOZAPINE [Suspect]
     Active Substance: CLOZAPINE
     Indication: Product used for unknown indication

REACTIONS (7)
  - Chest discomfort [Unknown]
  - Myocarditis [Unknown]
  - Troponin increased [Unknown]
  - Leukocytosis [Unknown]
  - C-reactive protein increased [Unknown]
  - Blood creatine phosphokinase increased [Unknown]
  - Mental disorder [Not Recovered/Not Resolved]

NARRATIVE: CASE EVENT DATE: 20241201
